FAERS Safety Report 4923844-6 (Version None)
Quarter: 2006Q1

REPORT INFORMATION
  Report Type: 
  Country: None (occurrence: None)
  Receive Date: 20060227
  Receipt Date: 20050218
  Transmission Date: 20060701
  Serious: Yes (Hospitalization)
  Sender: FDA-Public Use
  Company Number: US-MERCK-0502USA02725

PATIENT
  Age: 63 Year
  Sex: Male
  Weight: 84 kg

DRUGS (7)
  1. VIOXX [Suspect]
     Indication: OSTEOARTHRITIS
     Route: 048
     Dates: start: 20000629, end: 20011029
  2. VIOXX [Suspect]
     Route: 048
     Dates: start: 20021220, end: 20021227
  3. VIOXX [Suspect]
     Route: 048
     Dates: end: 20040101
  4. PREVACID [Concomitant]
     Route: 065
  5. COUMADIN [Concomitant]
     Indication: DEEP VEIN THROMBOSIS
     Route: 065
  6. ACIPHEX [Concomitant]
     Route: 065
  7. ASPIRIN [Concomitant]
     Route: 065

REACTIONS (8)
  - ACUTE MYOCARDIAL INFARCTION [None]
  - BACK PAIN [None]
  - DIABETES MELLITUS NON-INSULIN-DEPENDENT [None]
  - HAEMOCHROMATOSIS [None]
  - HYPERTENSION [None]
  - MYOCARDIAL ISCHAEMIA [None]
  - OESOPHAGEAL STENOSIS [None]
  - ROTATOR CUFF SYNDROME [None]
